FAERS Safety Report 18367375 (Version 4)
Quarter: 2022Q4

REPORT INFORMATION
  Report Type: Spontaneous
  Country: US (occurrence: None)
  Receive Date: 20201009
  Receipt Date: 20221026
  Transmission Date: 20230113
  Serious: Yes (Hospitalization, Other)
  Sender: FDA-Public Use
  Company Number: 2020SF28084

PATIENT
  Age: 22210 Day
  Sex: Male
  Weight: 104.3 kg

DRUGS (51)
  1. XIGDUO XR [Suspect]
     Active Substance: DAPAGLIFLOZIN PROPANEDIOL\METFORMIN HYDROCHLORIDE
     Indication: Type 2 diabetes mellitus
     Route: 048
     Dates: start: 20150126, end: 2018
  2. XIGDUO XR [Suspect]
     Active Substance: DAPAGLIFLOZIN PROPANEDIOL\METFORMIN HYDROCHLORIDE
     Indication: Weight decreased
     Route: 048
     Dates: start: 20150126, end: 2018
  3. XIGDUO XR [Suspect]
     Active Substance: DAPAGLIFLOZIN PROPANEDIOL\METFORMIN HYDROCHLORIDE
     Indication: Hypotension
     Route: 048
     Dates: start: 20150126, end: 2018
  4. XIGDUO XR [Suspect]
     Active Substance: DAPAGLIFLOZIN PROPANEDIOL\METFORMIN HYDROCHLORIDE
     Indication: Type 2 diabetes mellitus
     Route: 048
     Dates: start: 20150605
  5. XIGDUO XR [Suspect]
     Active Substance: DAPAGLIFLOZIN PROPANEDIOL\METFORMIN HYDROCHLORIDE
     Indication: Weight decreased
     Route: 048
     Dates: start: 20150605
  6. XIGDUO XR [Suspect]
     Active Substance: DAPAGLIFLOZIN PROPANEDIOL\METFORMIN HYDROCHLORIDE
     Indication: Hypotension
     Route: 048
     Dates: start: 20150605
  7. CLINDAMYCIN [Concomitant]
     Active Substance: CLINDAMYCIN
     Route: 065
     Dates: start: 20150620
  8. NOVOLOG [Concomitant]
     Active Substance: INSULIN ASPART
     Route: 065
     Dates: start: 20150620
  9. DILAUDID [Concomitant]
     Active Substance: HYDROMORPHONE HYDROCHLORIDE
     Route: 065
     Dates: start: 20150620
  10. CIPROFLOXACIN [Concomitant]
     Active Substance: CIPROFLOXACIN
     Route: 065
     Dates: start: 20150620
  11. CELEXA [Concomitant]
     Active Substance: CITALOPRAM HYDROBROMIDE
     Route: 065
     Dates: start: 20150620
  12. COLACE [Concomitant]
     Active Substance: DOCUSATE SODIUM
     Route: 065
     Dates: start: 20150620
  13. HEPARIN [Concomitant]
     Active Substance: HEPARIN SODIUM
     Route: 065
     Dates: start: 20150620
  14. SEROQUEL [Concomitant]
     Active Substance: QUETIAPINE FUMARATE
     Route: 065
     Dates: start: 20150620
  15. OXYCODONE [Concomitant]
     Active Substance: OXYCODONE
     Route: 065
     Dates: start: 20150619
  16. CLORPACTIN [Concomitant]
     Route: 065
     Dates: start: 20150619
  17. FENTANYL [Concomitant]
     Active Substance: FENTANYL
     Route: 065
     Dates: start: 20150619
  18. POTASSIUM CHLORIDE [Concomitant]
     Active Substance: POTASSIUM CHLORIDE
     Route: 065
     Dates: start: 20150614
  19. ZOSYN [Concomitant]
     Active Substance: PIPERACILLIN SODIUM\TAZOBACTAM SODIUM
     Route: 065
     Dates: start: 20150613
  20. VANCOCIN [Concomitant]
     Active Substance: VANCOMYCIN HYDROCHLORIDE
     Route: 065
     Dates: start: 20150611
  21. ONDANSETRON [Concomitant]
     Active Substance: ONDANSETRON
     Route: 065
     Dates: start: 20150609
  22. IBUPROFEN [Concomitant]
     Active Substance: IBUPROFEN
     Route: 065
     Dates: start: 20150607
  23. MORPHINE [Concomitant]
     Active Substance: MORPHINE
     Route: 065
     Dates: start: 20150607
  24. NORCO [Concomitant]
     Active Substance: ACETAMINOPHEN\HYDROCODONE BITARTRATE
     Route: 065
     Dates: start: 20150605
  25. METFORMIN [Concomitant]
     Active Substance: METFORMIN HYDROCHLORIDE
     Route: 065
     Dates: start: 20150605
  26. HUMALOG [Concomitant]
     Active Substance: INSULIN LISPRO
     Route: 065
     Dates: start: 20150605
  27. PITAVASTATIN [Concomitant]
     Active Substance: PITAVASTATIN
     Route: 065
     Dates: start: 20150605
  28. LANTUS SOLOSTAR [Concomitant]
     Active Substance: INSULIN GLARGINE
     Route: 065
  29. LISINOPRIL [Concomitant]
     Active Substance: LISINOPRIL
     Route: 065
  30. MELOXICAM [Concomitant]
     Active Substance: MELOXICAM
     Route: 065
  31. AVELOX [Concomitant]
     Active Substance: MOXIFLOXACIN HYDROCHLORIDE
     Route: 065
  32. AMOXICILLIN [Concomitant]
     Active Substance: AMOXICILLIN
     Route: 065
  33. FLUXETIN [Concomitant]
  34. LEVEMIR [Concomitant]
     Active Substance: INSULIN DETEMIR
  35. ACETAMINOPHEN\HYDROCODONE BITARTRATE [Concomitant]
     Active Substance: ACETAMINOPHEN\HYDROCODONE BITARTRATE
  36. ATORVASTATIN [Concomitant]
     Active Substance: ATORVASTATIN
  37. FLUOXETINE [Concomitant]
     Active Substance: FLUOXETINE HYDROCHLORIDE
  38. LEVOFLOXACIN [Concomitant]
     Active Substance: LEVOFLOXACIN
  39. DOXYCYCLINE [Concomitant]
     Active Substance: DOXYCYCLINE
  40. ALPRAZOLAM [Concomitant]
     Active Substance: ALPRAZOLAM
  41. LIVALO [Concomitant]
     Active Substance: PITAVASTATIN CALCIUM
  42. CYCLOSET [Concomitant]
     Active Substance: BROMOCRIPTINE MESYLATE
  43. THEOBROMA CACAO/GLUTAMIC ACID/CRATAEGUS LAEVIGATA FRUIT/TRAZODONE HYDR [Concomitant]
  44. CITALOPRAM [Concomitant]
     Active Substance: CITALOPRAM HYDROBROMIDE
  45. FENOFIBRATE [Concomitant]
     Active Substance: FENOFIBRATE
  46. AZITHROMYCIN [Concomitant]
     Active Substance: AZITHROMYCIN
  47. CLINDAMYCIN [Concomitant]
     Active Substance: CLINDAMYCIN
  48. INVOKANA [Concomitant]
     Active Substance: CANAGLIFLOZIN
     Indication: Diabetes mellitus
     Dates: start: 201312, end: 2014
  49. TRAZODONE [Concomitant]
     Active Substance: TRAZODONE HYDROCHLORIDE
     Indication: Depression
     Dates: start: 2015
  50. TRULICITY [Concomitant]
     Active Substance: DULAGLUTIDE
     Indication: Diabetes mellitus
     Dates: start: 2015
  51. JARDIANCE [Concomitant]
     Active Substance: EMPAGLIFLOZIN
     Indication: Diabetes mellitus
     Dates: start: 2014

REACTIONS (10)
  - Abscess [Unknown]
  - Abscess limb [Unknown]
  - Cellulitis [Unknown]
  - Fournier^s gangrene [Unknown]
  - Groin abscess [Unknown]
  - Sepsis [Unknown]
  - Cerebrovascular accident [Unknown]
  - Genital abscess [Unknown]
  - Anal abscess [Unknown]
  - Depression [Unknown]

NARRATIVE: CASE EVENT DATE: 20150605
